FAERS Safety Report 7692832-1 (Version None)
Quarter: 2011Q3

REPORT INFORMATION
  Report Type: 
  Country: None (occurrence: None)
  Receive Date: 20110819
  Receipt Date: 20110809
  Transmission Date: 20111222
  Serious: Yes (Other)
  Sender: FDA-Public Use
  Company Number: US-JNJFOC-20110805562

PATIENT
  Age: 2 Year

DRUGS (1)
  1. TOPAMAX [Suspect]
     Indication: MATERNAL EXPOSURE DURING PREGNANCY
     Dosage: PATIENT'S MOTHER WAS TREATED FROM 06-SEP-2006 FOR SEIZURES
     Route: 064

REACTIONS (1)
  - AUTISM [None]
